FAERS Safety Report 7433410-9 (Version None)
Quarter: 2011Q2

REPORT INFORMATION
  Report Type: 
  Country: None (occurrence: None)
  Receive Date: 20110422
  Receipt Date: 20110418
  Transmission Date: 20111010
  Serious: Yes (Other)
  Sender: FDA-Public Use
  Company Number: GB-ELI_LILLY_AND_COMPANY-GB201102005443

PATIENT
  Sex: Female

DRUGS (2)
  1. HUMALOG MIX 75/25 [Suspect]
     Indication: DIABETES MELLITUS
     Route: 058
  2. HUMALOG [Suspect]
     Indication: DIABETES MELLITUS
     Route: 058

REACTIONS (3)
  - WRONG DRUG ADMINISTERED [None]
  - HYPOGLYCAEMIC UNCONSCIOUSNESS [None]
  - DRUG NAME CONFUSION [None]
